FAERS Safety Report 24024548 (Version 1)
Quarter: 2024Q2

REPORT INFORMATION
  Report Type: Report from Study
  Country: PT (occurrence: PT)
  Receive Date: 20240628
  Receipt Date: 20240628
  Transmission Date: 20240716
  Serious: No
  Sender: FDA-Public Use
  Company Number: PT-ROCHE-3506121

PATIENT
  Age: 65 Year
  Sex: Female

DRUGS (3)
  1. ALECTINIB [Suspect]
     Active Substance: ALECTINIB
     Indication: Lung cancer metastatic
     Dosage: PRE-STUDY ALECTINIB DOSE
     Route: 065
     Dates: start: 20191022
  2. ALECTINIB [Suspect]
     Active Substance: ALECTINIB
     Route: 048
     Dates: start: 20221004
  3. INFLUENZA VIRUS VACCINE [Concomitant]
     Active Substance: INFLUENZA VIRUS VACCINE
     Indication: Influenza
     Dosage: 1 UNKNOWN
     Route: 058
     Dates: start: 20221203, end: 20221203

REACTIONS (1)
  - COVID-19 [Recovered/Resolved]

NARRATIVE: CASE EVENT DATE: 20221220
